FAERS Safety Report 18024678 (Version 1)
Quarter: 2020Q3

REPORT INFORMATION
  Report Type: Spontaneous
  Country: US (occurrence: US)
  Receive Date: 20200715
  Receipt Date: 20200715
  Transmission Date: 20201103
  Serious: Yes (Hospitalization)
  Sender: FDA-Public Use
  Company Number: None

PATIENT
  Age: 11 Month
  Sex: Male
  Weight: 8.55 kg

DRUGS (1)
  1. AMOXICILLIN WEST?WARD [Suspect]
     Active Substance: AMOXICILLIN
     Indication: EAR INFECTION
     Route: 048
     Dates: start: 20200712, end: 20200715

REACTIONS (7)
  - Vomiting [None]
  - Reaction to excipient [None]
  - Dehydration [None]
  - Product formulation issue [None]
  - Diarrhoea [None]
  - Haematochezia [None]
  - Product use complaint [None]

NARRATIVE: CASE EVENT DATE: 20200714
